FAERS Safety Report 9959003 (Version 2)
Quarter: 2014Q1

REPORT INFORMATION
  Report Type: Report from Study
  Country: US (occurrence: US)
  Receive Date: 20140305
  Receipt Date: 20140305
  Transmission Date: 20141002
  Serious: No
  Sender: FDA-Public Use
  Company Number: US-ABBVIE-13P-163-1085569-00

PATIENT
  Age: 69 Year
  Sex: Female

DRUGS (13)
  1. HYDROCORTISONE [Concomitant]
     Indication: PRODUCT USED FOR UNKNOWN INDICATION
     Dosage: AT NIGHT
  2. CALCIUM [Concomitant]
     Indication: PRODUCT USED FOR UNKNOWN INDICATION
     Dosage: 500MG DAILY
  3. VITAMIN D [Concomitant]
     Indication: PRODUCT USED FOR UNKNOWN INDICATION
  4. CENTRUM SILVER [Concomitant]
     Indication: PRODUCT USED FOR UNKNOWN INDICATION
     Dosage: DAILY
  5. HUMIRA [Suspect]
     Indication: COLITIS ULCERATIVE
     Dosage: LOADING DOSE
     Dates: start: 20130409
  6. HUMIRA [Suspect]
     Dosage: LOADING DOSE
     Dates: start: 20130423
  7. APRISO [Concomitant]
     Indication: COLITIS ULCERATIVE
  8. SYNTHROID [Concomitant]
     Indication: NEOPLASM MALIGNANT
     Dosage: 125MCG DAILY
     Dates: start: 2008
  9. PLAQUENIL [Concomitant]
     Indication: RHEUMATOID ARTHRITIS
     Dosage: 200MG DAILY
  10. ZOLOFT [Concomitant]
     Indication: DEPRESSION
  11. ZOLOFT [Concomitant]
     Indication: ANXIETY
  12. METOPROLOL [Concomitant]
     Indication: HYPERTENSION
  13. CANASA [Concomitant]
     Indication: PRODUCT USED FOR UNKNOWN INDICATION
     Dosage: DAILY IN AM

REACTIONS (6)
  - Haemorrhoids [Recovering/Resolving]
  - Abdominal discomfort [Recovering/Resolving]
  - Haematochezia [Recovering/Resolving]
  - Full blood count abnormal [Unknown]
  - Thrombosis [Unknown]
  - Constipation [Recovering/Resolving]
